FAERS Safety Report 6427341-0 (Version None)
Quarter: 2009Q4

REPORT INFORMATION
  Report Type: 
  Country: None (occurrence: None)
  Receive Date: 20091104
  Receipt Date: 20091027
  Transmission Date: 20100525
  Serious: Yes (Disabling, Other)
  Sender: FDA-Public Use
  Company Number: GB-TEVA-213819ISR

PATIENT
  Age: 41 Year
  Sex: Female

DRUGS (3)
  1. MIRTAZAPINE [Interacting]
     Indication: DEPRESSION
     Dates: start: 20070724
  2. PREZISTA [Suspect]
     Indication: HIV INFECTION
     Route: 048
     Dates: start: 20070227, end: 20080219
  3. RITONAVIR [Suspect]
     Indication: HIV INFECTION
     Dates: start: 20070227

REACTIONS (3)
  - DRUG INTERACTION [None]
  - LIPOHYPERTROPHY [None]
  - WEIGHT INCREASED [None]
